FAERS Safety Report 5746992-X (Version None)
Quarter: 2008Q2

REPORT INFORMATION
  Report Type: 
  Country: None (occurrence: None)
  Receive Date: 20080522
  Receipt Date: 20080515
  Transmission Date: 20081010
  Serious: Yes (Other)
  Sender: FDA-Public Use
  Company Number: NL-PFIZER INC-2008042966

PATIENT
  Sex: Male

DRUGS (1)
  1. NORVASC [Suspect]
     Route: 048

REACTIONS (1)
  - CATARACT [None]
